FAERS Safety Report 9265545 (Version 1)
Quarter: 2013Q2

REPORT INFORMATION
  Report Type: Spontaneous
  Country: US (occurrence: US)
  Receive Date: 20130501
  Receipt Date: 20130501
  Transmission Date: 20140414
  Serious: No
  Sender: FDA-Public Use
  Company Number: US-PFIZER INC-2013131466

PATIENT
  Age: 34 Year
  Sex: Female
  Weight: 63.49 kg

DRUGS (6)
  1. LYRICA [Suspect]
     Indication: FIBROMYALGIA
     Dosage: 200 MG, 3X/DAY
     Dates: start: 2010
  2. LYRICA [Suspect]
     Dosage: 200 MG, 2X/DAY
  3. XANAX [Suspect]
     Indication: ANXIETY
     Dosage: UNK
  4. ATIVAN [Suspect]
     Indication: SLEEP DISORDER
     Dosage: 1 MG, 3X/DAY
     Dates: start: 1998
  5. ATIVAN [Suspect]
     Indication: ANXIETY
  6. LORTAB [Concomitant]
     Indication: JOINT INJURY
     Dosage: 7.5 MG, 2X/DAY

REACTIONS (5)
  - Post-traumatic stress disorder [Unknown]
  - Intentional drug misuse [Unknown]
  - Pre-existing condition improved [Unknown]
  - Therapeutic response unexpected [Unknown]
  - Drug ineffective [Unknown]
